FAERS Safety Report 7354090-7 (Version None)
Quarter: 2011Q1

REPORT INFORMATION
  Report Type: 
  Country: None (occurrence: None)
  Receive Date: 20110315
  Receipt Date: 20110307
  Transmission Date: 20110831
  Serious: Yes (Hospitalization, Other)
  Sender: FDA-Public Use
  Company Number: US-AMGEN-USASP2011009980

PATIENT
  Age: 83 Year
  Sex: Male

DRUGS (1)
  1. ENBREL [Suspect]
     Indication: PSORIATIC ARTHROPATHY
     Dosage: 50 MG, QWK
     Dates: start: 20101223

REACTIONS (10)
  - PALLOR [None]
  - BLOOD SODIUM DECREASED [None]
  - TRANSIENT ISCHAEMIC ATTACK [None]
  - EYE DISORDER [None]
  - DIARRHOEA [None]
  - VOMITING [None]
  - PYREXIA [None]
  - APHASIA [None]
  - NAUSEA [None]
  - OESOPHAGEAL DISORDER [None]
